FAERS Safety Report 14628207 (Version 1)
Quarter: 2018Q1

REPORT INFORMATION
  Report Type: Spontaneous
  Country: US (occurrence: US)
  Receive Date: 20180312
  Receipt Date: 20180312
  Transmission Date: 20180509
  Serious: No
  Sender: FDA-Public Use
  Company Number: US-ALLERGAN-1730835US

PATIENT
  Age: 78 Year
  Sex: Female

DRUGS (4)
  1. VITAMIN B3 [Concomitant]
     Active Substance: NIACIN
  2. ESTRACE [Suspect]
     Active Substance: ESTRADIOL
     Indication: VAGINAL PROLAPSE REPAIR
     Dosage: 1 MG, EVERY THREE DAYS
     Route: 067
     Dates: start: 20170705, end: 20170708
  3. FISH OIL [Concomitant]
     Active Substance: FISH OIL
  4. BABY ASPIRIN [Concomitant]
     Active Substance: ASPIRIN

REACTIONS (4)
  - Urticaria [Recovering/Resolving]
  - Pruritus [Recovering/Resolving]
  - Off label use [Unknown]
  - Skin burning sensation [Recovering/Resolving]

NARRATIVE: CASE EVENT DATE: 20170709
